FAERS Safety Report 6702773-1 (Version None)
Quarter: 2010Q2

REPORT INFORMATION
  Report Type: 
  Country: None (occurrence: None)
  Receive Date: 20100429
  Receipt Date: 20100419
  Transmission Date: 20101027
  Serious: Yes (Hospitalization)
  Sender: FDA-Public Use
  Company Number: IN-ELI_LILLY_AND_COMPANY-IN201004005132

PATIENT
  Age: 35 Year
  Sex: Female

DRUGS (2)
  1. XIGRIS [Suspect]
     Indication: SEPTIC SHOCK
     Dosage: UNK, UNK
     Dates: start: 20100417, end: 20100418
  2. ANTIBIOTICS [Concomitant]
     Dates: start: 20100417

REACTIONS (1)
  - INTERNATIONAL NORMALISED RATIO INCREASED [None]
